FAERS Safety Report 7166494-6 (Version None)
Quarter: 2010Q4

REPORT INFORMATION
  Report Type: 
  Country: None (occurrence: None)
  Receive Date: 20101203
  Receipt Date: 20101118
  Transmission Date: 20110411
  Serious: Yes (Hospitalization)
  Sender: FDA-Public Use
  Company Number: DSJ-2010-20811

PATIENT
  Sex: Female

DRUGS (2)
  1. BENICAR [Suspect]
     Indication: HYPERTENSION
     Dosage: 20 MG (20 MG, 1 IN 1 D), PER ORAL
     Route: 048
     Dates: start: 20080101
  2. AMFEPRAMONE (AMFEPRAMONE) (AMFEPRAMONE) [Concomitant]

REACTIONS (2)
  - DRUG INEFFECTIVE [None]
  - HYSTERECTOMY [None]
